FAERS Safety Report 6714224-1 (Version None)
Quarter: 2010Q2

REPORT INFORMATION
  Report Type: 
  Country: None (occurrence: None)
  Receive Date: 20100506
  Receipt Date: 20100429
  Transmission Date: 20101027
  Serious: Yes (Hospitalization)
  Sender: FDA-Public Use
  Company Number: PHHO2010DE06547

PATIENT
  Sex: Male
  Weight: 62.1 kg

DRUGS (2)
  1. AFINITOR [Suspect]
     Indication: HEPATIC CANCER METASTATIC
     Dosage: 2.5 MG
     Route: 048
     Dates: start: 20090806
  2. AVASTIN COMP-AVA+ [Suspect]
     Indication: HEPATIC CANCER METASTATIC
     Dosage: UNK
     Route: 048
     Dates: start: 20090806

REACTIONS (2)
  - ILEUS [None]
  - SUBILEUS [None]
